FAERS Safety Report 8716898 (Version 2)
Quarter: 2012Q4

REPORT INFORMATION
  Report Type: 
  Country: US (occurrence: US)
  Receive Date: 20120810
  Receipt Date: 20121022
  Transmission Date: 20130627
  Serious: Yes (Hospitalization)
  Sender: FDA-Public Use
  Company Number: US-BAYER-2012-079858

PATIENT
  Age: 26 Year
  Sex: Female

DRUGS (5)
  1. YASMIN [Suspect]
     Dosage: UNK
     Dates: start: 201008, end: 20110318
  2. OCELLA [Suspect]
     Dosage: UNK
     Dates: start: 201008, end: 20110318
  3. CENTRALLY ACTING SYMPATHOMIMETICS [Concomitant]
     Indication: ATTENTION DEFICIT/HYPERACTIVITY DISORDER
     Dosage: 40 mg, UNK
     Route: 048
     Dates: start: 20100820, end: 20110827
  4. LEXAPRO [Concomitant]
     Indication: DEPRESSION
     Dosage: 20 mg, UNK
     Route: 048
     Dates: start: 20100712, end: 20110701
  5. BENADRYL [Concomitant]
     Indication: HYPERSENSITIVITY

REACTIONS (4)
  - Deep vein thrombosis [None]
  - Axillary vein thrombosis [None]
  - Thrombophlebitis superficial [None]
  - Pulmonary embolism [None]
